FAERS Safety Report 9909555 (Version 4)
Quarter: 2014Q4

REPORT INFORMATION
  Report Type: Spontaneous
  Country: US (occurrence: US)
  Receive Date: 20140219
  Receipt Date: 20141016
  Transmission Date: 20150529
  Serious: Yes (Hospitalization, Disabling, Other)
  Sender: FDA-Public Use
  Company Number: US-BAYER-2014-025177

PATIENT
  Age: 22 Year
  Sex: Female
  Weight: 47.62 kg

DRUGS (2)
  1. DEPO-PROVERA [Concomitant]
     Active Substance: MEDROXYPROGESTERONE ACETATE
  2. MIRENA [Suspect]
     Active Substance: LEVONORGESTREL
     Indication: CONTRACEPTION
     Dosage: 20 MCG/24HR, CONT
     Route: 015
     Dates: start: 201007, end: 20130926

REACTIONS (17)
  - Pain [None]
  - Depression [None]
  - Menorrhagia [None]
  - Abdominal pain lower [None]
  - Anxiety [None]
  - Device issue [None]
  - Headache [None]
  - Emotional distress [None]
  - General physical health deterioration [None]
  - Dyspareunia [None]
  - Device dislocation [None]
  - Anhedonia [None]
  - Ectopic pregnancy with contraceptive device [None]
  - Drug ineffective [None]
  - Deformity [None]
  - Genital haemorrhage [None]
  - Injury [None]

NARRATIVE: CASE EVENT DATE: 201007
